FAERS Safety Report 5929373-5 (Version None)
Quarter: 2008Q4

REPORT INFORMATION
  Report Type: 
  Country: None (occurrence: None)
  Receive Date: 20081024
  Receipt Date: 20081021
  Transmission Date: 20090506
  Serious: Yes (Hospitalization, Other)
  Sender: FDA-Public Use
  Company Number: US-ASTRAZENECA-2004UW22437

PATIENT
  Age: 72 Year
  Sex: Female
  Weight: 81.6 kg

DRUGS (21)
  1. ARIMIDEX [Suspect]
     Indication: BREAST CANCER
     Dosage: OFF ARIMIDEX FOR TWO MONTHS IN 2006
     Route: 048
     Dates: start: 20060101
  2. ARIMIDEX [Suspect]
     Dosage: OFF ARIMIDEX FOR TWO MONTHS IN 2006
     Route: 048
     Dates: start: 20030411, end: 20060101
  3. NAPROSYN [Concomitant]
  4. SYNTHROID [Concomitant]
  5. LASIX [Concomitant]
  6. DUOFOLD NEBULIZER [Concomitant]
  7. MULTI-VITAMINS [Concomitant]
  8. WHEY PROTEIN [Concomitant]
  9. MUCINEX [Concomitant]
  10. IPRATROPRIUM BROMIDE/ALBUTEROL SULFATE [Concomitant]
  11. CALCIUM MAGNESIUM ZINC [Concomitant]
  12. VITAMIN B COMPLEX CAP [Concomitant]
  13. GINKGO [Concomitant]
  14. PSYLLIUM [Concomitant]
  15. VITAMIN A [Concomitant]
  16. ASCORBIC ACID [Concomitant]
  17. NIACIN [Concomitant]
  18. COUMADIN [Concomitant]
  19. NASONEX [Concomitant]
  20. LEVOTHROID [Concomitant]
  21. VITAMIN B-12 [Concomitant]

REACTIONS (12)
  - ALOPECIA [None]
  - ARTHRALGIA [None]
  - ARTHRITIS [None]
  - DEAFNESS UNILATERAL [None]
  - FATIGUE [None]
  - HERPES ZOSTER [None]
  - HYPOAESTHESIA [None]
  - MYALGIA [None]
  - NEUROPATHY PERIPHERAL [None]
  - PNEUMONIA [None]
  - PULMONARY EMBOLISM [None]
  - WEIGHT DECREASED [None]
